FAERS Safety Report 18926383 (Version 4)
Quarter: 2022Q2

REPORT INFORMATION
  Report Type: Report from Study
  Country: None (occurrence: US)
  Receive Date: 20210223
  Receipt Date: 20220413
  Transmission Date: 20220720
  Serious: Yes (Other)
  Sender: FDA-Public Use
  Company Number: US-AKCEA THERAPEUTICS-2020IS001607

PATIENT
  Age: 76 Year
  Sex: Male

DRUGS (3)
  1. TEGSEDI [Suspect]
     Active Substance: INOTERSEN SODIUM
     Indication: Hereditary neuropathic amyloidosis
     Route: 058
     Dates: end: 202012
  2. DEVICE [Suspect]
     Active Substance: DEVICE
  3. TEGSEDI [Suspect]
     Active Substance: INOTERSEN SODIUM
     Route: 058

REACTIONS (9)
  - Glomerular filtration rate decreased [Unknown]
  - Blood creatinine increased [Unknown]
  - White blood cells urine positive [Unknown]
  - Urine protein/creatinine ratio abnormal [Unknown]
  - Protein urine present [Unknown]
  - Urinary casts [Unknown]
  - Urine leukocyte esterase positive [Unknown]
  - Glomerulonephritis [Unknown]
  - Renal failure [Unknown]

NARRATIVE: CASE EVENT DATE: 20201103
